FAERS Safety Report 25033993 (Version 3)
Quarter: 2025Q2

REPORT INFORMATION
  Report Type: Spontaneous
  Country: US (occurrence: None)
  Receive Date: 20250303
  Receipt Date: 20250515
  Transmission Date: 20250716
  Serious: Yes (Other)
  Sender: Alvotech
  Company Number: US-ALVOTECHPMS-2025-ALVOTECHPMS-003324

PATIENT
  Age: 23 Year

DRUGS (3)
  1. ADALIMUMAB-RYVK [Suspect]
     Active Substance: ADALIMUMAB-RYVK
     Indication: Rheumatoid arthritis
     Dosage: 40MG/0.4ML (ADMINISTER 0.4ML (40MG) SUBQ EVERY OTHER WEEK )
     Route: 058
     Dates: start: 20240822, end: 20250211
  2. METHOTREXATE [Concomitant]
     Active Substance: METHOTREXATE
     Dates: start: 202309
  3. PREDNISONE [Concomitant]
     Active Substance: PREDNISONE
     Dates: start: 202502

REACTIONS (2)
  - Product substitution issue [Unknown]
  - Rheumatoid arthritis [Unknown]

NARRATIVE: CASE EVENT DATE: 20250203
